FAERS Safety Report 4713878-9 (Version None)
Quarter: 2005Q3

REPORT INFORMATION
  Report Type: 
  Country: None (occurrence: None)
  Receive Date: 20050713
  Receipt Date: 20050624
  Transmission Date: 20060218
  Serious: Yes (Other)
  Sender: FDA-Public Use
  Company Number: USA0506101404

PATIENT
  Age: 64 Year
  Sex: Female

DRUGS (4)
  1. CYMBALTA [Suspect]
     Indication: DEPRESSION
     Dosage: 120 MG
  2. ATIVAN [Concomitant]
  3. TOPAMAX [Concomitant]
  4. SEROQUEL [Concomitant]

REACTIONS (1)
  - CONVULSION [None]
